FAERS Safety Report 6402899-6 (Version None)
Quarter: 2009Q4

REPORT INFORMATION
  Report Type: 
  Country: None (occurrence: None)
  Receive Date: 20091008
  Receipt Date: 20091008
  Transmission Date: 20100525
  Serious: Yes (Hospitalization)
  Sender: FDA-Public Use
  Company Number: None

PATIENT
  Sex: Male
  Weight: 84.2 kg

DRUGS (7)
  1. ZACTIMA 100MG [Suspect]
     Indication: OESOPHAGEAL CARCINOMA
     Dosage: 100MG QD PO
     Route: 048
     Dates: start: 20090812
  2. NEXIUM [Concomitant]
  3. MS CONTIN [Concomitant]
  4. COMPAZINE [Concomitant]
  5. VALTREX [Concomitant]
  6. MINOCYCLINE [Concomitant]
  7. AMBIEN [Concomitant]

REACTIONS (2)
  - PROCEDURAL COMPLICATION [None]
  - URINARY RETENTION [None]
